FAERS Safety Report 18369679 (Version 1)
Quarter: 2020Q4

REPORT INFORMATION
  Report Type: Spontaneous
  Country: DE (occurrence: DE)
  Receive Date: 20201012
  Receipt Date: 20201012
  Transmission Date: 20210114
  Serious: Yes (Hospitalization, Other)
  Sender: FDA-Public Use
  Company Number: DE-SUN PHARMACEUTICAL INDUSTRIES LTD-2020RR-263927

PATIENT
  Age: 35 Year
  Sex: Female

DRUGS (4)
  1. PUREGON [FOLLITROPIN BETA] [Suspect]
     Active Substance: FOLLITROPIN
     Indication: ASSISTED REPRODUCTIVE TECHNOLOGY
     Dosage: 225 INTERNATIONAL UNIT, UNK
     Route: 065
     Dates: start: 20200714, end: 20200716
  2. PUREGON [FOLLITROPIN BETA] [Suspect]
     Active Substance: FOLLITROPIN
     Dosage: 200 INTERNATIONAL UNIT, UNK
     Route: 065
     Dates: start: 20200717, end: 20200724
  3. FYREMADEL [Suspect]
     Active Substance: GANIRELIX ACETATE
     Indication: ASSISTED REPRODUCTIVE TECHNOLOGY
     Dosage: UNK
     Route: 065
  4. OVITRELLE [Suspect]
     Active Substance: CHORIOGONADOTROPIN ALFA
     Indication: OVULATION INDUCTION
     Dosage: UNK
     Route: 065
     Dates: start: 20200725

REACTIONS (8)
  - Nausea [Recovered/Resolved]
  - Urinary tract infection [Recovered/Resolved]
  - Hyperkalaemia [Recovered/Resolved]
  - Ovarian hyperstimulation syndrome [Recovered/Resolved]
  - Abdominal pain upper [Recovered/Resolved]
  - Acute kidney injury [Recovered/Resolved]
  - Metabolic acidosis [Recovered/Resolved]
  - Fluid overload [Recovered/Resolved]

NARRATIVE: CASE EVENT DATE: 20200730
